FAERS Safety Report 9269661 (Version 3)
Quarter: 2013Q2

REPORT INFORMATION
  Report Type: Spontaneous
  Country: BR (occurrence: BR)
  Receive Date: 20130503
  Receipt Date: 20130613
  Transmission Date: 20140414
  Serious: Yes (Other)
  Sender: FDA-Public Use
  Company Number: BR-PFIZER INC-2013131330

PATIENT
  Age: 78 Year
  Sex: Male

DRUGS (2)
  1. SUTENT [Suspect]
     Indication: RENAL CELL CARCINOMA
     Dosage: 50 MG, CYCLIC (CYCLE 4 PER 2)
     Route: 048
     Dates: start: 20130408, end: 20130416
  2. ENALAPRIL [Concomitant]
     Dosage: UNK

REACTIONS (6)
  - Lip swelling [Recovered/Resolved]
  - Oedema mouth [Recovered/Resolved]
  - Blood urine present [Recovered/Resolved]
  - Decubitus ulcer [Recovered/Resolved]
  - Blister [Recovered/Resolved]
  - Swelling face [Not Recovered/Not Resolved]
